FAERS Safety Report 13413293 (Version 2)
Quarter: 2017Q2

REPORT INFORMATION
  Report Type: Spontaneous
  Country: BR (occurrence: BR)
  Receive Date: 20170407
  Receipt Date: 20170512
  Transmission Date: 20170830
  Serious: Yes (Hospitalization, Other)
  Sender: FDA-Public Use
  Company Number: BR-009507513-1704BRA002429

PATIENT
  Age: 47 Year
  Sex: Female
  Weight: 108 kg

DRUGS (3)
  1. TRUSOPT [Suspect]
     Active Substance: DORZOLAMIDE HYDROCHLORIDE
     Indication: GLAUCOMA
     Dosage: 2 GTT, BID (1 DROP IN EACH EYE, TWICE DAILY)
     Route: 047
     Dates: start: 2010, end: 201703
  2. OCUPRESS [Suspect]
     Active Substance: CARTEOLOL HYDROCHLORIDE
     Indication: GLAUCOMA
     Dosage: UNK
     Route: 047
     Dates: start: 201703
  3. ALPHAGAN P [Concomitant]
     Active Substance: BRIMONIDINE TARTRATE
     Indication: GLAUCOMA
     Dosage: 2 GTT, BID (1 DROP IN EACH EYE, TWICE DAILY)
     Route: 047
     Dates: start: 2010

REACTIONS (6)
  - Asthma [Not Recovered/Not Resolved]
  - Product availability issue [Unknown]
  - Pulmonary function test decreased [Recovered/Resolved]
  - Infection [Recovered/Resolved]
  - Eye pruritus [Not Recovered/Not Resolved]
  - Asthmatic crisis [Recovered/Resolved]

NARRATIVE: CASE EVENT DATE: 2015
